FAERS Safety Report 4891163-2 (Version None)
Quarter: 2006Q1

REPORT INFORMATION
  Report Type: 
  Country: None (occurrence: None)
  Receive Date: 20060125
  Receipt Date: 20050103
  Transmission Date: 20060701
  Serious: Yes (Death)
  Sender: FDA-Public Use
  Company Number: US-GLAXOSMITHKLINE-A0539357A

PATIENT
  Age: 49 Year
  Sex: Male

DRUGS (3)
  1. PAXIL [Suspect]
     Indication: ANXIETY
     Dosage: 20MG PER DAY
     Route: 048
     Dates: start: 19970101
  2. PRILOSEC [Concomitant]
  3. NORVASC [Concomitant]

REACTIONS (6)
  - ABNORMAL BEHAVIOUR [None]
  - COMPLETED SUICIDE [None]
  - GUN SHOT WOUND [None]
  - INSOMNIA [None]
  - MAJOR DEPRESSION [None]
  - SOCIAL AVOIDANT BEHAVIOUR [None]
